FAERS Safety Report 9343148 (Version 1)
Quarter: 2013Q2

REPORT INFORMATION
  Report Type: Spontaneous
  Country: DE (occurrence: DE)
  Receive Date: 20130611
  Receipt Date: 20130611
  Transmission Date: 20140414
  Serious: Yes (Hospitalization)
  Sender: FDA-Public Use
  Company Number: DE-MYLANLABS-2013S1012290

PATIENT
  Age: 34 Year
  Sex: Female

DRUGS (13)
  1. CLARITHROMYCIN [Suspect]
     Dosage: 2 X 250MG
     Route: 048
     Dates: start: 200707
  2. CLARITHROMYCIN [Suspect]
     Dosage: 2 X 250MG
     Route: 048
     Dates: start: 201009
  3. MOXIFLOXACIN [Suspect]
     Dosage: 1 X 400MG
     Route: 048
     Dates: start: 200806
  4. CIPROFLOXACIN [Suspect]
     Dosage: 2 X 500MG
     Route: 048
     Dates: start: 201003
  5. CIPROFLOXACIN [Suspect]
     Dosage: 2 X 500MG
     Route: 048
     Dates: start: 201105
  6. PIPERACILLIN W/TAZOBACTAM /01606301/ [Suspect]
     Dosage: 3 X 4.5G
     Route: 042
     Dates: start: 201009
  7. PIPERACILLIN W/TAZOBACTAM /01606301/ [Suspect]
     Dosage: 3 X 4.5G
     Route: 042
     Dates: start: 201102
  8. GENTAMICIN [Suspect]
     Dosage: 1 X 240MG
     Route: 042
     Dates: start: 201009
  9. GENTAMICIN [Suspect]
     Dosage: 1 X 240MG
     Route: 042
     Dates: start: 201102
  10. CEFTRIAXONE [Suspect]
     Dosage: 1 X 1G
     Route: 042
     Dates: start: 201012
  11. MEROPENEM [Suspect]
     Dosage: 3 X 1G
     Route: 042
     Dates: start: 201105
  12. IMMUNE GLOBULIN [Concomitant]
     Indication: IMMUNODEFICIENCY COMMON VARIABLE
     Route: 051
     Dates: start: 1998
  13. IMMUNE GLOBULIN [Concomitant]
     Indication: IMMUNODEFICIENCY COMMON VARIABLE
     Route: 058
     Dates: start: 1998

REACTIONS (2)
  - Multiple-drug resistance [Unknown]
  - Pneumonia haemophilus [Unknown]
